FAERS Safety Report 8992182 (Version 1)
Quarter: 2012Q4

REPORT INFORMATION
  Report Type: Report from Study
  Country: BR (occurrence: BR)
  Receive Date: 20121231
  Receipt Date: 20121231
  Transmission Date: 20130627
  Serious: Yes (Other)
  Sender: FDA-Public Use
  Company Number: BR-ABBOTT-12P-020-1028214-00

PATIENT
  Age: 51 Year
  Sex: Female
  Weight: 74 kg

DRUGS (7)
  1. HUMIRA [Suspect]
     Indication: RHEUMATOID ARTHRITIS
     Route: 058
     Dates: start: 20120404, end: 20120601
  2. HUMIRA [Suspect]
     Route: 058
     Dates: start: 20121217
  3. KETOPROFEN [Concomitant]
     Indication: PAIN
     Dates: start: 2006
  4. PREDNISONE [Concomitant]
     Indication: ARTHRITIS
     Route: 048
     Dates: start: 2006
  5. FOLIC ACID [Concomitant]
     Indication: ARTHRITIS
     Route: 048
     Dates: start: 2006
  6. TECNOMET [Concomitant]
     Indication: ARTHRITIS
     Route: 048
     Dates: start: 2006
  7. PROPANOLOL [Concomitant]
     Indication: HYPERTENSION
     Route: 048
     Dates: start: 201112

REACTIONS (4)
  - Intervertebral disc protrusion [Recovered/Resolved]
  - Injection site erythema [Recovering/Resolving]
  - Injection site swelling [Recovering/Resolving]
  - Pain [Unknown]
